FAERS Safety Report 9834329 (Version 1)
Quarter: 2014Q1

REPORT INFORMATION
  Report Type: Spontaneous
  Country: AR (occurrence: AR)
  Receive Date: 20140122
  Receipt Date: 20140122
  Transmission Date: 20141002
  Serious: Yes (Hospitalization)
  Sender: FDA-Public Use
  Company Number: AR-SA-2014SA006570

PATIENT
  Age: 31 Year
  Sex: Male
  Weight: 60 kg

DRUGS (2)
  1. FABRAZYME [Suspect]
     Indication: FABRY^S DISEASE
     Route: 042
     Dates: start: 2006
  2. ENALAPRIL [Concomitant]
     Indication: PROTEINURIA
     Route: 048

REACTIONS (4)
  - Cellulitis [Recovering/Resolving]
  - Localised infection [Recovering/Resolving]
  - Oedema peripheral [Recovering/Resolving]
  - Pyrexia [Recovering/Resolving]
